FAERS Safety Report 9387579 (Version 1)
Quarter: 2013Q3

REPORT INFORMATION
  Report Type: Spontaneous
  Country: US (occurrence: None)
  Receive Date: 20130702
  Receipt Date: 20130702
  Transmission Date: 20140515
  Serious: Yes (Death, Hospitalization)
  Sender: FDA-Public Use
  Company Number: UTC-034595

PATIENT
  Age: 72 Year
  Sex: Female

DRUGS (3)
  1. TYVASO [Suspect]
     Indication: PULMONARY ARTERIAL HYPERTENSION
     Route: 055
     Dates: start: 20121018
  2. WARFARIN(UNKNOWN) [Concomitant]
  3. REVATIO(SILDENAFIL CITRATE)(UNKNOWN) [Concomitant]

REACTIONS (3)
  - Femur fracture [None]
  - Fall [None]
  - General physical health deterioration [None]
